FAERS Safety Report 9168949 (Version 2)
Quarter: 2013Q2

REPORT INFORMATION
  Report Type: Spontaneous
  Country: US (occurrence: US)
  Receive Date: 20130318
  Receipt Date: 20130401
  Transmission Date: 20140414
  Serious: No
  Sender: FDA-Public Use
  Company Number: US-PFIZER INC-2013086617

PATIENT
  Sex: Male

DRUGS (3)
  1. LEVOXYL [Suspect]
     Dosage: 150 UG, UNK
  2. LEVOXYL [Suspect]
     Dosage: UNK
  3. LEVOXYL [Suspect]
     Dosage: UNK

REACTIONS (2)
  - Drug effect delayed [Unknown]
  - Product quality issue [Unknown]
